FAERS Safety Report 23596210 (Version 7)
Quarter: 2024Q2

REPORT INFORMATION
  Report Type: Spontaneous
  Country: US (occurrence: US)
  Receive Date: 20240305
  Receipt Date: 20240516
  Transmission Date: 20240716
  Serious: Yes (Other)
  Sender: FDA-Public Use
  Company Number: US-002147023-NVSC2024US045746

PATIENT

DRUGS (1)
  1. COSENTYX [Suspect]
     Active Substance: SECUKINUMAB
     Indication: Product used for unknown indication
     Dosage: UNK
     Route: 065

REACTIONS (16)
  - Psoriatic arthropathy [Unknown]
  - Injection site mass [Unknown]
  - Muscle spasms [Unknown]
  - Allergy to metals [Unknown]
  - Injection site pruritus [Unknown]
  - Headache [Unknown]
  - Pain [Unknown]
  - Musculoskeletal stiffness [Unknown]
  - Fatigue [Unknown]
  - Injection site urticaria [Unknown]
  - Dizziness [Unknown]
  - Illness [Unknown]
  - Immune system disorder [Unknown]
  - Candida infection [Unknown]
  - Sinusitis [Unknown]
  - Alopecia [Unknown]
